FAERS Safety Report 19612970 (Version 1)
Quarter: 2021Q3

REPORT INFORMATION
  Report Type: Spontaneous
  Country: US (occurrence: US)
  Receive Date: 20210727
  Receipt Date: 20210727
  Transmission Date: 20211014
  Serious: Yes (Other)
  Sender: FDA-Public Use
  Company Number: US-LUPIN PHARMACEUTICALS INC.-2021-12958

PATIENT
  Sex: Female

DRUGS (2)
  1. HYDROXYCHLOROQUINE [Suspect]
     Active Substance: HYDROXYCHLOROQUINE
     Indication: CYSTITIS INTERSTITIAL
     Dosage: 400 MILLIGRAM, QD
     Route: 065
  2. PENTOSAN POLYSULFATE [Suspect]
     Active Substance: PENTOSAN POLYSULFATE
     Indication: CYSTITIS INTERSTITIAL
     Dosage: 400 MILLIGRAM, QD, ONGOING FOR 18 YEARS; RECEIVED A CUMULATIVE DOSE OF 2628G (AT PRESENTATION), 7.02
     Route: 065

REACTIONS (2)
  - Maculopathy [Unknown]
  - Toxicity to various agents [Unknown]
